FAERS Safety Report 10882373 (Version 1)
Quarter: 2015Q1

REPORT INFORMATION
  Report Type: Spontaneous
  Country: US (occurrence: US)
  Receive Date: 20150303
  Receipt Date: 20150303
  Transmission Date: 20150721
  Serious: Yes (Hospitalization)
  Sender: FDA-Public Use
  Company Number: US-CELGENEUS-USA-2015024321

PATIENT
  Age: 45 Year
  Sex: Male

DRUGS (13)
  1. JANUMET [Concomitant]
     Active Substance: METFORMIN HYDROCHLORIDE\SITAGLIPTIN PHOSPHATE
     Indication: TYPE 2 DIABETES MELLITUS
     Dosage: 50-1000MG
     Route: 048
     Dates: start: 20140114
  2. GLUCOTROL XL [Concomitant]
     Active Substance: GLIPIZIDE
     Indication: TYPE 2 DIABETES MELLITUS
     Route: 048
     Dates: start: 20140527
  3. ACY-1215 [Suspect]
     Active Substance: RICOLINOSTAT
     Dosage: REDUCED DOSE
     Route: 048
     Dates: start: 20150210, end: 20150216
  4. LIPITOR [Concomitant]
     Active Substance: ATORVASTATIN CALCIUM
     Indication: BLOOD CHOLESTEROL INCREASED
     Route: 048
     Dates: start: 20140916
  5. NORCO [Concomitant]
     Active Substance: ACETAMINOPHEN\HYDROCODONE BITARTRATE
     Indication: PAIN
     Dosage: 10-325MG
     Route: 048
     Dates: start: 20150203
  6. BABY ASPIRIN [Concomitant]
     Active Substance: ASPIRIN
     Indication: THROMBOSIS PROPHYLAXIS
     Dosage: 40 MILLIEQUIVALENTS
     Route: 048
     Dates: start: 20150210
  7. DEXAMETHASONE. [Suspect]
     Active Substance: DEXAMETHASONE
     Indication: PRODUCT USED FOR UNKNOWN INDICATION
     Route: 048
     Dates: start: 20150210, end: 20150216
  8. ZESTRIL [Concomitant]
     Active Substance: LISINOPRIL
     Indication: HYPERTENSION
     Route: 048
     Dates: start: 20140224
  9. K-DUR [Concomitant]
     Active Substance: POTASSIUM CHLORIDE
     Indication: HYPOKALAEMIA
     Route: 048
     Dates: start: 20140224
  10. AXIRON [Concomitant]
     Active Substance: TESTOSTERONE
     Indication: BLOOD TESTOSTERONE
     Dosage: 1 PUMP
     Route: 061
     Dates: start: 20140916
  11. ZITHROMAX [Concomitant]
     Active Substance: AZITHROMYCIN DIHYDRATE
     Indication: NASOPHARYNGITIS
     Dosage: 10 MILLIGRAM
     Route: 048
     Dates: start: 20150203, end: 20150207
  12. POMALYST [Suspect]
     Active Substance: POMALIDOMIDE
     Indication: PRODUCT USED FOR UNKNOWN INDICATION
     Dosage: 4 MILLIGRAM
     Route: 048
     Dates: start: 20150210, end: 20150216
  13. ACY-1215 [Suspect]
     Active Substance: RICOLINOSTAT
     Indication: PRODUCT USED FOR UNKNOWN INDICATION
     Route: 048
     Dates: start: 20150210, end: 20150216

REACTIONS (3)
  - Pneumonia [Unknown]
  - Dehydration [Unknown]
  - Febrile neutropenia [Recovered/Resolved]

NARRATIVE: CASE EVENT DATE: 20150216
